FAERS Safety Report 7812994 (Version 4)
Quarter: 2013Q3

REPORT INFORMATION
  Report Type: Spontaneous
  Country: DK (occurrence: DK)
  Receive Date: 20110215
  Receipt Date: 20130925
  Transmission Date: 20140515
  Serious: Yes (Life-Threatening, Hospitalization, Disabling)
  Sender: FDA-Public Use
  Company Number: DK-WATSON-2011-01864

PATIENT
  Age: 31 Year
  Sex: Female

DRUGS (4)
  1. CIPROFLOXACIN HYDROCHLORIDE [Suspect]
     Indication: DIARRHOEA
     Dosage: UNK
     Route: 048
     Dates: start: 20101006, end: 20101006
  2. PRIMPERAN [Suspect]
     Indication: NAUSEA
     Dosage: UNK
     Route: 048
     Dates: start: 20101006, end: 20101006
  3. DEPRAKINE /00228501/ [Suspect]
     Indication: EPILEPSY
     Dosage: UNK
     Route: 048
     Dates: start: 19950101, end: 20101009
  4. IMODIUM [Suspect]
     Indication: DIARRHOEA
     Dosage: 2 MG, UNKNOWN
     Route: 048
     Dates: start: 20101006, end: 20101006

REACTIONS (4)
  - Toxic epidermal necrolysis [Recovered/Resolved with Sequelae]
  - Dry eye [Not Recovered/Not Resolved]
  - Visual acuity reduced [Not Recovered/Not Resolved]
  - Activities of daily living impaired [Not Recovered/Not Resolved]
